FAERS Safety Report 6860643-2 (Version None)
Quarter: 2010Q2

REPORT INFORMATION
  Report Type: 
  Country: None (occurrence: None)
  Receive Date: 20100528
  Receipt Date: 20080703
  Transmission Date: 20101027
  Serious: Yes (Hospitalization)
  Sender: FDA-Public Use
  Company Number: CIP06001147

PATIENT
  Age: 45 Year
  Sex: Female
  Weight: 50.8 kg

DRUGS (7)
  1. ACTONEL [Suspect]
     Indication: OSTEOPOROSIS
     Dosage: 35 MG, 1/WEEK, ORAL
     Route: 048
     Dates: start: 20030711
  2. FOSAMAX [Suspect]
     Indication: OSTEOPOROSIS
     Dosage: 70 MG, 1/WEEK, ORAL
     Route: 048
     Dates: start: 20020619, end: 20021101
  3. PAXIL [Concomitant]
  4. XANAX [Concomitant]
  5. MULTIVITAMIN /00831701/ (VITAMINS NOS) [Concomitant]
  6. CALCIUM CITRATE W/VITAMIN D NOS (VITAMIN D NOS, CALCIUM CITRATE) [Concomitant]
  7. NICOTINE [Concomitant]

REACTIONS (37)
  - AMENORRHOEA [None]
  - BREATH ODOUR [None]
  - BRUXISM [None]
  - CELLULITIS STREPTOCOCCAL [None]
  - CHILLS [None]
  - DECREASED APPETITE [None]
  - DEPRESSION [None]
  - FACIAL PAIN [None]
  - HEADACHE [None]
  - HYPERHIDROSIS [None]
  - HYPERTENSION [None]
  - INSOMNIA [None]
  - JAW FRACTURE [None]
  - LYMPHADENOPATHY [None]
  - MALOCCLUSION [None]
  - MANIA [None]
  - ODYNOPHAGIA [None]
  - ORAL PAIN [None]
  - OSTEOMYELITIS [None]
  - OSTEONECROSIS [None]
  - PAIN IN JAW [None]
  - PARAESTHESIA [None]
  - PROCEDURAL NAUSEA [None]
  - PROCEDURAL VOMITING [None]
  - PURULENT DISCHARGE [None]
  - PYREXIA [None]
  - STOMATITIS [None]
  - SWELLING [None]
  - SWELLING FACE [None]
  - TEMPOROMANDIBULAR JOINT SYNDROME [None]
  - TOOTH ABSCESS [None]
  - TOOTH DISORDER [None]
  - TOOTH EROSION [None]
  - TOOTH EXTRACTION [None]
  - TOOTH INFECTION [None]
  - TRIGEMINAL NEURALGIA [None]
  - TRISMUS [None]
